FAERS Safety Report 8451790-2 (Version None)
Quarter: 2012Q2

REPORT INFORMATION
  Report Type: 
  Country: None (occurrence: None)
  Receive Date: 20120620
  Receipt Date: 20120607
  Transmission Date: 20120825
  Serious: No
  Sender: FDA-Public Use
  Company Number: US-ASTRAZENECA-2012SE38216

PATIENT
  Age: 39 Year
  Sex: Female
  Weight: 113.4 kg

DRUGS (8)
  1. TRAMADOL HCL [Concomitant]
  2. DEPAKOTE ER [Concomitant]
  3. ZOLOFT [Concomitant]
  4. HYDROCODONE [Concomitant]
  5. WELLBUTRIN SR [Concomitant]
  6. METHYLTHENID [Concomitant]
  7. SEROQUEL XR [Suspect]
     Indication: SLEEP DISORDER
     Route: 048
     Dates: start: 20010101
  8. LYRICA [Concomitant]

REACTIONS (1)
  - COMPLEX REGIONAL PAIN SYNDROME [None]
